FAERS Safety Report 10583759 (Version 2)
Quarter: 2014Q4

REPORT INFORMATION
  Report Type: Spontaneous
  Country: US (occurrence: None)
  Receive Date: 20141112
  Receipt Date: 20141128
  Transmission Date: 20150529
  Serious: Yes (Death, Other)
  Sender: FDA-Public Use
  Company Number: 2014-20680

PATIENT
  Age: 78 Year
  Sex: Male

DRUGS (11)
  1. EYLEA [Suspect]
     Active Substance: AFLIBERCEPT
     Indication: AGE-RELATED MACULAR DEGENERATION
     Dosage: 2 MG MILLIGRAM, Q MONTHLY O Q 6 WEEKS, INTRAOCULAR
     Route: 031
     Dates: start: 201306
  2. LOSARTAN [Concomitant]
     Active Substance: LOSARTAN
  3. VIT C (ASCORBIC ACID) [Concomitant]
  4. ASPIRIN. [Concomitant]
     Active Substance: ASPIRIN
  5. MULTIVITAMINS PLUS IRON (FERROUS SUATE, VITAMINS NOS) [Concomitant]
  6. VITAMIN B COMPLEX [Concomitant]
     Active Substance: CYANOCOBALAMIN\DEXPANTHENOL\NIACINAMIDE\PYRIDOXINE HYDROCHLORIDE\RIBOFLAVIN 5^-PHOSPHATE SODIUM\THIAMINE HYDROCHLORIDE\VITAMIN B COMPLEX
  7. IRON [Concomitant]
     Active Substance: IRON
  8. THYROID THERAPY [Concomitant]
     Active Substance: UNSPECIFIED INGREDIENT
  9. DOCUSATE [Concomitant]
     Active Substance: DOCUSATE
  10. FOLIC ACID (FOLIC ACID) [Concomitant]
     Active Substance: FOLIC ACID
  11. LOVASTATIN. [Concomitant]
     Active Substance: LOVASTATIN

REACTIONS (1)
  - Completed suicide [None]

NARRATIVE: CASE EVENT DATE: 20141029
